FAERS Safety Report 11869611 (Version 2)
Quarter: 2016Q1

REPORT INFORMATION
  Report Type: Report from Study
  Country: DE (occurrence: DE)
  Receive Date: 20151228
  Receipt Date: 20160107
  Transmission Date: 20160526
  Serious: Yes (Life-Threatening, Other)
  Sender: FDA-Public Use
  Company Number: DE-ABBVIE-15K-062-1407364-00

PATIENT
  Age: 55 Year
  Sex: Male
  Weight: 79 kg

DRUGS (13)
  1. HUMIRA [Suspect]
     Active Substance: ADALIMUMAB
     Dosage: APPLICATION INTERVAL SHORTENED AGAIN
     Route: 058
     Dates: start: 2011, end: 201208
  2. HUMIRA [Suspect]
     Active Substance: ADALIMUMAB
     Route: 058
     Dates: end: 2014
  3. MESALAZIN [Suspect]
     Active Substance: MESALAMINE
     Indication: COLITIS ULCERATIVE
     Route: 065
  4. SALOFALK [Concomitant]
     Active Substance: MESALAMINE
     Indication: PRODUCT USED FOR UNKNOWN INDICATION
  5. FERRO SANOL [Concomitant]
     Active Substance: FERROUS GLYCINE SULFATE
     Indication: PRODUCT USED FOR UNKNOWN INDICATION
  6. HUMIRA [Suspect]
     Active Substance: ADALIMUMAB
     Indication: RHEUMATOID ARTHRITIS
     Route: 058
     Dates: start: 200808, end: 2011
  7. HUMIRA [Suspect]
     Active Substance: ADALIMUMAB
     Route: 058
     Dates: start: 201208
  8. FOLIC ACID. [Concomitant]
     Active Substance: FOLIC ACID
     Indication: PRODUCT USED FOR UNKNOWN INDICATION
  9. HUMIRA [Suspect]
     Active Substance: ADALIMUMAB
     Indication: COLITIS ULCERATIVE
     Dosage: APPLICATION INTERVAL SHORTENED AGAIN, EXTENDED APPLICATION INTERVAL
     Route: 058
     Dates: start: 2011, end: 2011
  10. HUMIRA [Suspect]
     Active Substance: ADALIMUMAB
     Route: 058
     Dates: start: 2014, end: 201504
  11. COLECALCIFEROL [Concomitant]
     Active Substance: CHOLECALCIFEROL
     Indication: OSTEOPOROSIS
  12. MTX [Concomitant]
     Active Substance: METHOTREXATE SODIUM
     Indication: PRODUCT USED FOR UNKNOWN INDICATION
     Route: 048
     Dates: start: 201111
  13. COLECALCIFEROL [Concomitant]
     Active Substance: CHOLECALCIFEROL
     Indication: OSTEOPENIA

REACTIONS (24)
  - Monoclonal gammopathy [Recovering/Resolving]
  - Bronchitis [Not Recovered/Not Resolved]
  - Stress [Not Recovered/Not Resolved]
  - Arthropathy [Recovering/Resolving]
  - Haemoglobin decreased [Unknown]
  - Dry mouth [Not Recovered/Not Resolved]
  - Leukaemia [Not Recovered/Not Resolved]
  - Colitis ulcerative [Unknown]
  - Dry eye [Not Recovered/Not Resolved]
  - Red blood cell sedimentation rate increased [Unknown]
  - Diarrhoea [Unknown]
  - Arthralgia [Recovering/Resolving]
  - Plasma cell myeloma [Not Recovered/Not Resolved]
  - Electrophoresis protein abnormal [Recovering/Resolving]
  - Anaemia [Unknown]
  - Colitis ulcerative [Unknown]
  - C-reactive protein increased [Unknown]
  - Blood test abnormal [Recovering/Resolving]
  - Colitis ulcerative [Recovering/Resolving]
  - Rheumatic disorder [Recovering/Resolving]
  - Osteoporosis [Unknown]
  - Joint swelling [Recovering/Resolving]
  - Frequent bowel movements [Not Recovered/Not Resolved]
  - Synovitis [Unknown]

NARRATIVE: CASE EVENT DATE: 2009
